FAERS Safety Report 9520405 (Version 1)
Quarter: 2013Q3

REPORT INFORMATION
  Report Type: Report from Study
  Country: BR (occurrence: BR)
  Receive Date: 20130912
  Receipt Date: 20130912
  Transmission Date: 20140515
  Serious: Yes (Other)
  Sender: FDA-Public Use
  Company Number: BR-US-EMD SERONO, INC.-7234873

PATIENT
  Sex: Female

DRUGS (6)
  1. REBIF [Suspect]
     Indication: MULTIPLE SCLEROSIS
     Dates: start: 20090701
  2. CLONAZEPAM [Suspect]
     Indication: INSOMNIA
  3. CLONAZEPAM [Suspect]
  4. HYDROCHLOROTHIAZIDE [Concomitant]
  5. METFORMIN [Concomitant]
     Indication: PRODUCT USED FOR UNKNOWN INDICATION
  6. CAPTOPRIL [Concomitant]
     Indication: PRODUCT USED FOR UNKNOWN INDICATION

REACTIONS (4)
  - Urinary tract infection [Recovering/Resolving]
  - Insomnia [Unknown]
  - Somnolence [Unknown]
  - Muscular weakness [Unknown]
